FAERS Safety Report 20004847 (Version 1)
Quarter: 2021Q4

REPORT INFORMATION
  Report Type: Spontaneous
  Country: US (occurrence: US)
  Receive Date: 20211027
  Receipt Date: 20211027
  Transmission Date: 20220304
  Serious: Yes (unspecified)
  Sender: FDA-Public Use
  Company Number: None

PATIENT
  Age: 57 Year
  Sex: Male
  Weight: 89.4 kg

DRUGS (11)
  1. CISPLATIN [Suspect]
     Active Substance: CISPLATIN
     Indication: Cholangiocarcinoma
     Dosage: ?          OTHER FREQUENCY:EVERY 2 WEEKS;
     Route: 042
     Dates: start: 20210416
  2. APREPITANT [Concomitant]
     Active Substance: APREPITANT
     Dates: start: 20210416
  3. PALONOSETRON. [Concomitant]
     Active Substance: PALONOSETRON HYDROCHLORIDE
     Dates: start: 20210416
  4. dexamethaxone [Concomitant]
     Dates: start: 20210416
  5. DIPHENHYDRAMINE [Concomitant]
     Active Substance: DIPHENHYDRAMINE
     Dates: start: 20211008
  6. MONTELUKAST [Concomitant]
     Active Substance: MONTELUKAST SODIUM
     Dates: start: 20211022
  7. FAMOTIDINE [Concomitant]
     Active Substance: FAMOTIDINE
     Dates: start: 20211022
  8. GEMCITABINE [Concomitant]
     Active Substance: GEMCITABINE
     Dates: start: 20210416
  9. PEGFILGRASTIM [Concomitant]
     Active Substance: PEGFILGRASTIM
     Dates: start: 20210910
  10. epoetin-epbx [Concomitant]
     Dates: start: 20210721
  11. TRAMADOL [Concomitant]
     Active Substance: TRAMADOL
     Dates: start: 20210921

REACTIONS (2)
  - Pruritus [None]
  - Palmar erythema [None]

NARRATIVE: CASE EVENT DATE: 20211022
